FAERS Safety Report 25620854 (Version 1)
Quarter: 2025Q3

REPORT INFORMATION
  Report Type: Other
  Country: EU (occurrence: EU)
  Receive Date: 20250730
  Receipt Date: 20250730
  Transmission Date: 20251021
  Serious: Yes (Hospitalization, Other)
  Sender: APPCO PHARMA LLC
  Company Number: EU-Appco Pharma LLC-2181491

PATIENT
  Sex: Female
  Weight: 1.7 kg

DRUGS (2)
  1. SERTRALINE [Suspect]
     Active Substance: SERTRALINE HYDROCHLORIDE
     Indication: Product used for unknown indication
  2. LAMOTRIGINE [Concomitant]
     Active Substance: LAMOTRIGINE

REACTIONS (4)
  - Ductus arteriosus premature closure [Recovered/Resolved]
  - Low birth weight baby [Unknown]
  - Premature baby [Unknown]
  - Foetal exposure during pregnancy [Unknown]
